FAERS Safety Report 20560335 (Version 2)
Quarter: 2022Q2

REPORT INFORMATION
  Report Type: Spontaneous
  Country: ES (occurrence: ES)
  Receive Date: 20220307
  Receipt Date: 20220412
  Transmission Date: 20220721
  Serious: Yes (Death, Other)
  Sender: FDA-Public Use
  Company Number: ES-TEVA-2022-ES-2008047

PATIENT
  Age: 75 Year
  Sex: Male

DRUGS (3)
  1. CARBOPLATIN [Suspect]
     Active Substance: CARBOPLATIN
     Dosage: UNK
     Route: 042
  2. VINORELBINE [Suspect]
     Active Substance: VINORELBINE TARTRATE
     Indication: Basosquamous carcinoma
     Dosage: UNK
     Route: 065
  3. VISMODEGIB [Suspect]
     Active Substance: VISMODEGIB
     Indication: Basosquamous carcinoma

REACTIONS (4)
  - Septic shock [Fatal]
  - Thrombocytopenia [Fatal]
  - Neutropenia [Fatal]
  - Multiple organ dysfunction syndrome [Fatal]
